FAERS Safety Report 19261747 (Version 2)
Quarter: 2021Q3

REPORT INFORMATION
  Report Type: Spontaneous
  Country: US (occurrence: US)
  Receive Date: 20210515
  Receipt Date: 20210721
  Transmission Date: 20211014
  Serious: Yes (Life-Threatening, Hospitalization)
  Sender: FDA-Public Use
  Company Number: US-TEVA-2021-US-1910104

PATIENT
  Age: 11 Year

DRUGS (8)
  1. THEOPHYLLINE [Suspect]
     Active Substance: THEOPHYLLINE ANHYDROUS
     Indication: ASTHMA
     Route: 065
  2. KETAMINE [Suspect]
     Active Substance: KETAMINE
     Indication: RESPIRATORY FAILURE
  3. METHYLPREDNISOLONE. [Suspect]
     Active Substance: METHYLPREDNISOLONE
     Indication: RESPIRATORY FAILURE
  4. ISOFLURANE. [Suspect]
     Active Substance: ISOFLURANE
     Indication: RESPIRATORY FAILURE
  5. KETAMINE [Suspect]
     Active Substance: KETAMINE
     Indication: ASTHMA
     Route: 065
  6. THEOPHYLLINE [Suspect]
     Active Substance: THEOPHYLLINE ANHYDROUS
     Indication: RESPIRATORY FAILURE
  7. METHYLPREDNISOLONE. [Suspect]
     Active Substance: METHYLPREDNISOLONE
     Indication: ASTHMA
     Route: 042
  8. ISOFLURANE. [Suspect]
     Active Substance: ISOFLURANE
     Indication: ASTHMA
     Route: 065

REACTIONS (2)
  - Hyperthermia malignant [Recovering/Resolving]
  - Treatment failure [Unknown]
